FAERS Safety Report 9639920 (Version 1)
Quarter: 2013Q4

REPORT INFORMATION
  Report Type: Spontaneous
  Country: US (occurrence: US)
  Receive Date: 20131023
  Receipt Date: 20131023
  Transmission Date: 20140711
  Serious: No
  Sender: FDA-Public Use
  Company Number: US-MYLANLABS-2012S1018575

PATIENT
  Age: 68 Year
  Sex: Female

DRUGS (2)
  1. CARVEDILOL TABLETS [Suspect]
     Indication: BLOOD PRESSURE INCREASED
     Route: 048
     Dates: start: 201208
  2. KLONOPIN [Concomitant]
     Indication: INSOMNIA

REACTIONS (1)
  - Fatigue [Not Recovered/Not Resolved]
